FAERS Safety Report 17686759 (Version 4)
Quarter: 2020Q2

REPORT INFORMATION
  Report Type: Report from Study
  Country: CA (occurrence: CA)
  Receive Date: 20200421
  Receipt Date: 20200625
  Transmission Date: 20200714
  Serious: Yes (Hospitalization, Other)
  Sender: FDA-Public Use
  Company Number: CA-JNJFOC-20200345828

PATIENT
  Age: 67 Year
  Sex: Male
  Weight: 82 kg

DRUGS (1)
  1. REMICADE [Suspect]
     Active Substance: INFLIXIMAB
     Indication: HIDRADENITIS
     Route: 042
     Dates: start: 20130704, end: 20200218

REACTIONS (2)
  - Surgery [Unknown]
  - Bladder neoplasm [Unknown]

NARRATIVE: CASE EVENT DATE: 20200515
